FAERS Safety Report 26057645 (Version 1)
Quarter: 2025Q4

REPORT INFORMATION
  Report Type: Spontaneous
  Country: US (occurrence: None)
  Receive Date: 20251118
  Receipt Date: 20251118
  Transmission Date: 20260117
  Serious: Yes (Other)
  Sender: UCB
  Company Number: US-UCBSA-2025049785

PATIENT
  Weight: 54 kg

DRUGS (9)
  1. VIMPAT [Suspect]
     Active Substance: LACOSAMIDE
     Indication: Seizure
     Dosage: UNK
  2. VIMPAT [Suspect]
     Active Substance: LACOSAMIDE
     Dosage: 100 MILLIGRAM, 2X/DAY (BID)
  3. VIMPAT [Suspect]
     Active Substance: LACOSAMIDE
     Dosage: 75 MILLIGRAM, 2X/DAY (BID)
  4. LAMOTRIGINE [Concomitant]
     Active Substance: LAMOTRIGINE
     Indication: Seizure
     Dosage: UNK
  5. EPIDIOLEX [Concomitant]
     Active Substance: CANNABIDIOL
     Indication: Seizure
     Dosage: 400 MILLIGRAM, 2X/DAY (BID)
  6. FELBAMATE [Concomitant]
     Active Substance: FELBAMATE
     Indication: Seizure
     Dosage: UNK, 800/600/800 MILLIGRAM , QD
  7. LAMICTAL [Concomitant]
     Active Substance: LAMOTRIGINE
     Indication: Seizure
     Dosage: 150 MILLIGRAM, 2X/DAY (BID)
  8. KLONOPIN [Concomitant]
     Active Substance: CLONAZEPAM
     Indication: Seizure
     Dosage: 05 MILLIGRAM, 2X/DAY (BID)
  9. NAYZILAM [Concomitant]
     Active Substance: MIDAZOLAM
     Indication: Seizure
     Dosage: UNK, PRN

REACTIONS (4)
  - Seizure [Unknown]
  - Anxiety [Unknown]
  - Stress [Unknown]
  - Medical device battery replacement [Unknown]
